FAERS Safety Report 22126599 (Version 1)
Quarter: 2023Q1

REPORT INFORMATION
  Report Type: Spontaneous
  Country: US (occurrence: None)
  Receive Date: 20230322
  Receipt Date: 20230322
  Transmission Date: 20230418
  Serious: No
  Sender: FDA-Public Use
  Company Number: None

PATIENT

DRUGS (1)
  1. INSULIN NOS [Suspect]
     Active Substance: INSULIN NOS
     Dosage: OTHER STRENGTH : 1 UNIT/20 ML ;?

REACTIONS (2)
  - Product preparation error [None]
  - Underdose [None]
